FAERS Safety Report 9249496 (Version 1)
Quarter: 2013Q2

REPORT INFORMATION
  Report Type: Spontaneous
  Country: CA (occurrence: CA)
  Receive Date: 20130423
  Receipt Date: 20130423
  Transmission Date: 20140414
  Serious: Yes (Life-Threatening, Hospitalization, Other)
  Sender: FDA-Public Use
  Company Number: CA-NAPPMUNDI-CAN-2013-0004022

PATIENT
  Age: 88 Year
  Sex: Female

DRUGS (1)
  1. OXYCONTIN TABLETS [Suspect]
     Indication: HEADACHE
     Dosage: UNK

REACTIONS (3)
  - Haemorrhagic cerebral infarction [Recovered/Resolved with Sequelae]
  - VIIth nerve paralysis [Recovered/Resolved with Sequelae]
  - Headache [Recovered/Resolved with Sequelae]
